FAERS Safety Report 14830340 (Version 1)
Quarter: 2018Q2

REPORT INFORMATION
  Report Type: Spontaneous
  Country: US (occurrence: US)
  Receive Date: 20180430
  Receipt Date: 20180430
  Transmission Date: 20180711
  Serious: No
  Sender: FDA-Public Use
  Company Number: US-SA-2018SA026877

PATIENT
  Age: 76 Year
  Sex: Male
  Weight: 62.14 kg

DRUGS (2)
  1. PRALUENT [Suspect]
     Active Substance: ALIROCUMAB
     Indication: BLOOD CHOLESTEROL
     Route: 058
  2. ALIROCUMAB PREFILLED PEN [Suspect]
     Active Substance: ALIROCUMAB
     Indication: BLOOD CHOLESTEROL

REACTIONS (3)
  - Device use issue [Unknown]
  - Injection site bruising [Recovered/Resolved]
  - Application site injury [Recovered/Resolved]

NARRATIVE: CASE EVENT DATE: 20180126
